FAERS Safety Report 4316877-4 (Version None)
Quarter: 2004Q1

REPORT INFORMATION
  Report Type: 
  Country: None (occurrence: None)
  Receive Date: 20040312
  Receipt Date: 20040312
  Transmission Date: 20041129
  Serious: Yes (Other)
  Sender: FDA-Public Use
  Company Number: None

PATIENT
  Age: 21 Year
  Sex: Male
  Weight: 85.0494 kg

DRUGS (2)
  1. TRAMADOL HCL [Suspect]
     Indication: BACK PAIN
     Dosage: 50 MG 4 PO Q 6 HRS
     Route: 048
     Dates: start: 20031002, end: 20031203
  2. TRAMADOL HCL [Suspect]
     Dosage: 50 MG 2 PO Q 6 HRS
     Route: 048
     Dates: start: 20030401, end: 20031002

REACTIONS (2)
  - CONVULSION [None]
  - DISEASE RECURRENCE [None]
